FAERS Safety Report 12616869 (Version 2)
Quarter: 2017Q1

REPORT INFORMATION
  Report Type: Spontaneous
  Country: US (occurrence: US)
  Receive Date: 20160802
  Receipt Date: 20170309
  Transmission Date: 20170428
  Serious: No
  Sender: FDA-Public Use
  Company Number: US-ASTRAZENECA-2016SE62106

PATIENT
  Sex: Female
  Weight: 68 kg

DRUGS (4)
  1. PRILOSEC [Suspect]
     Active Substance: OMEPRAZOLE MAGNESIUM
     Indication: DYSPEPSIA
     Route: 048
     Dates: start: 201602
  2. ASPIRIN. [Concomitant]
     Active Substance: ASPIRIN
     Indication: ARTHRITIS
  3. ADVIL [Suspect]
     Active Substance: IBUPROFEN
     Indication: ARTHRITIS
     Dosage: 200 MG TABLET BY MOUTH PER DAY AS NEEDED
     Route: 048
  4. CENTRUM SILVER WOMEN^S 50 [Suspect]
     Active Substance: MINERALS\VITAMINS
     Indication: DYSPEPSIA
     Dosage: ONE TABLET DAILY AFTER BREAKFAST
     Route: 065
     Dates: start: 201602

REACTIONS (3)
  - Weight increased [Recovering/Resolving]
  - Nail disorder [Unknown]
  - Restless legs syndrome [Not Recovered/Not Resolved]
